FAERS Safety Report 17170521 (Version 1)
Quarter: 2019Q4

REPORT INFORMATION
  Report Type: Spontaneous
  Country: FR (occurrence: FR)
  Receive Date: 20191218
  Receipt Date: 20191218
  Transmission Date: 20200122
  Serious: Yes (Hospitalization)
  Sender: FDA-Public Use
  Company Number: FR-JNJFOC-20191213179

PATIENT
  Sex: Male

DRUGS (4)
  1. LAMICTAL [Concomitant]
     Active Substance: LAMOTRIGINE
     Indication: BIPOLAR DISORDER
     Dosage: MOTHER^S DOSING
     Route: 064
     Dates: end: 201808
  2. EPITOMAX [Suspect]
     Active Substance: TOPIRAMATE
     Indication: BIPOLAR DISORDER
     Dosage: MOTHER^S DOSING
     Route: 064
     Dates: end: 20180201
  3. ZYPREXA [Concomitant]
     Active Substance: OLANZAPINE
     Indication: BIPOLAR DISORDER
     Dosage: MOTHER^S DOSING
     Route: 064
     Dates: start: 20180509
  4. XEROQUEL [Concomitant]
     Active Substance: QUETIAPINE FUMARATE
     Indication: BIPOLAR DISORDER
     Dosage: MOTHER^S DOSING
     Route: 064
     Dates: end: 20180509

REACTIONS (3)
  - Foetal hypokinesia [Recovered/Resolved]
  - Foetal growth restriction [Recovered/Resolved]
  - Foetal exposure during pregnancy [Recovered/Resolved]

NARRATIVE: CASE EVENT DATE: 20180908
